FAERS Safety Report 23723056 (Version 3)
Quarter: 2024Q4

REPORT INFORMATION
  Report Type: Spontaneous
  Country: US (occurrence: US)
  Receive Date: 20240409
  Receipt Date: 20241216
  Transmission Date: 20250115
  Serious: No
  Sender: AMGEN
  Company Number: US-PFIZER INC-202400080137

PATIENT
  Age: 70 Year
  Sex: Male

DRUGS (1)
  1. ENBREL [Suspect]
     Active Substance: ETANERCEPT
     Indication: Rheumatoid arthritis
     Dosage: UNK
     Route: 065

REACTIONS (3)
  - Condition aggravated [Unknown]
  - Fatigue [Unknown]
  - Rash [Unknown]
